FAERS Safety Report 5747197-9 (Version None)
Quarter: 2008Q2

REPORT INFORMATION
  Report Type: 
  Country: None (occurrence: None)
  Receive Date: 20080520
  Receipt Date: 20080506
  Transmission Date: 20081010
  Serious: Yes (Hospitalization)
  Sender: FDA-Public Use
  Company Number: 2008BI006658

PATIENT
  Age: 70 Year
  Sex: Female

DRUGS (2)
  1. AVONEX [Suspect]
     Indication: MULTIPLE SCLEROSIS
     Dosage: 30 UG; QW; IM
     Route: 030
  2. STEROIDS [Concomitant]

REACTIONS (4)
  - BACK INJURY [None]
  - DIABETES MELLITUS [None]
  - FALL [None]
  - HAEMOLYTIC ANAEMIA [None]
